FAERS Safety Report 7502285-1 (Version None)
Quarter: 2011Q2

REPORT INFORMATION
  Report Type: 
  Country: None (occurrence: None)
  Receive Date: 20110525
  Receipt Date: 20091122
  Transmission Date: 20111010
  Serious: Yes (Other)
  Sender: FDA-Public Use
  Company Number: US-BAYER-200940603NA

PATIENT
  Age: 57 Year
  Sex: Male
  Weight: 134 kg

DRUGS (16)
  1. TRAMADOL HCL [Concomitant]
     Dosage: 50 MG AS NEEDED
  2. NITROGLYCERIN [Concomitant]
     Route: 042
  3. PROTAMINE SULFATE [Concomitant]
  4. TRASYLOL [Suspect]
     Indication: MITRAL VALVE REPLACEMENT
     Dosage: 70CC, FOLLOWED BY INFUSION
     Route: 042
     Dates: start: 20050526, end: 20050526
  5. AVAPRO [Concomitant]
     Dosage: 150 MG, QD
  6. COUMADIN [Concomitant]
     Dosage: 5MG FOUR TIMES A WEEK
  7. ALLOPURINOL [Concomitant]
     Dosage: 100 MG, QD
  8. VICODIN [Concomitant]
     Dosage: 7.5/750MG AS NEEDED
  9. COREG [Concomitant]
     Dosage: 25 MG, BID
  10. DEMEDEX [Concomitant]
     Dosage: 40 MG, BID
  11. GLIPIZIDE [Concomitant]
     Dosage: 5 MG, QD
  12. IMDUR [Concomitant]
     Dosage: 30 MG, QD
  13. HEPARIN [Concomitant]
     Dosage: UNK
     Route: 042
     Dates: start: 20050526
  14. TRASYLOL [Suspect]
     Indication: CARDIAC OPERATION
  15. COLCHICINE [Concomitant]
     Dosage: 0.6 MG, QD
  16. CEFAZOLIN [Concomitant]
     Dosage: UNK
     Route: 042
     Dates: start: 20050526

REACTIONS (12)
  - RENAL FAILURE [None]
  - RENAL IMPAIRMENT [None]
  - FEAR [None]
  - ANHEDONIA [None]
  - PSYCHIATRIC SYMPTOM [None]
  - EMOTIONAL DISTRESS [None]
  - STRESS [None]
  - PAIN [None]
  - INJURY [None]
  - ANXIETY [None]
  - RENAL INJURY [None]
  - UNEVALUABLE EVENT [None]
